FAERS Safety Report 18985548 (Version 1)
Quarter: 2021Q1

REPORT INFORMATION
  Report Type: Spontaneous
  Country: DE (occurrence: CA)
  Receive Date: 20210309
  Receipt Date: 20210309
  Transmission Date: 20210420
  Serious: Yes (Death, Other)
  Sender: FDA-Public Use
  Company Number: DE-SUN PHARMACEUTICAL INDUSTRIES LTD-2021RR-284512

PATIENT
  Age: 80 Year
  Sex: Male

DRUGS (37)
  1. HEPARIN SODIUM. [Suspect]
     Active Substance: HEPARIN SODIUM
     Indication: ANTICOAGULANT THERAPY
     Dosage: 50 ML, PRN ; AS NECESSARY
     Route: 065
  2. ONDANSETRON [Suspect]
     Active Substance: ONDANSETRON
     Indication: NAUSEA
     Dosage: 12 MG, Q8H
     Route: 042
  3. SODIUM PHOSPHATE MONOBASIC [Suspect]
     Active Substance: SODIUM PHOSPHATE, MONOBASIC
     Indication: CONSTIPATION
     Dosage: 133 ML, PRN ; AS NECESSARY
     Route: 054
  4. DOBUTAMINE [Suspect]
     Active Substance: DOBUTAMINE HYDROCHLORIDE
     Indication: CARDIOGENIC SHOCK
     Dosage: UNK
     Route: 042
  5. METRONIDAZOLE. [Suspect]
     Active Substance: METRONIDAZOLE
     Indication: BACTERIAL INFECTION
     Dosage: 500 MG, Q8H
     Route: 048
  6. INSULIN ASPART [Suspect]
     Active Substance: INSULIN ASPART
     Indication: DIABETES MELLITUS
     Dosage: UNK
     Route: 058
  7. LANSOPRAZOLE. [Suspect]
     Active Substance: LANSOPRAZOLE
     Indication: ANTACID THERAPY
     Dosage: 30 MG, QD, CAPSULE
     Route: 048
  8. PHYTONADIONE. [Suspect]
     Active Substance: PHYTONADIONE
     Indication: VITAMIN SUPPLEMENTATION
     Dosage: 5 MG, PRN ; AS NECESSARY
     Route: 042
  9. CEFTRIAXONE. [Suspect]
     Active Substance: CEFTRIAXONE
     Indication: BACTERIAL INFECTION
     Dosage: 2 G, QD
     Route: 042
  10. HEPARIN SODIUM. [Suspect]
     Active Substance: HEPARIN SODIUM
     Dosage: 250 ML ; AS NECESSARY
     Route: 042
  11. ATROVENT [Suspect]
     Active Substance: IPRATROPIUM BROMIDE
     Indication: DYSPNOEA
     Dosage: UNK UNK, QID, 1 DOSE/6H
     Route: 055
  12. DALTEPARIN SODIUM [Suspect]
     Active Substance: DALTEPARIN SODIUM
     Indication: PULMONARY EMBOLISM
     Dosage: UNK
     Route: 065
  13. INSULIN DEGLUDEC [Suspect]
     Active Substance: INSULIN DEGLUDEC
     Indication: DIABETES MELLITUS
     Dosage: UNK
     Route: 058
  14. PYRIDOXINE HYDROCHLORIDE. [Suspect]
     Active Substance: PYRIDOXINE HYDROCHLORIDE
     Indication: VITAMIN SUPPLEMENTATION
     Dosage: UNK
     Route: 048
  15. ALLOPURINOL. [Suspect]
     Active Substance: ALLOPURINOL
     Indication: BLOOD URIC ACID INCREASED
     Dosage: 1 DF, QD
     Route: 048
  16. CALCITRIOL. [Suspect]
     Active Substance: CALCITRIOL
     Indication: VITAMIN D
     Dosage: 0.25 UG, QD
     Route: 048
  17. VILANTEROL TRIFENATATE [Suspect]
     Active Substance: VILANTEROL TRIFENATATE
     Indication: PRODUCT USED FOR UNKNOWN INDICATION
     Dosage: UNK
     Route: 065
  18. AMIODARONE HYDROCHLORIDE. [Suspect]
     Active Substance: AMIODARONE HYDROCHLORIDE
     Indication: VENTRICULAR FIBRILLATION
     Dosage: 150 MG, QD
     Route: 042
  19. NOREPINEPHRINE. [Suspect]
     Active Substance: NOREPINEPHRINE
     Indication: STRESS
     Dosage: UNK
     Route: 042
  20. SODIUM FERRIC GLUCONATE COMPLEX. [Suspect]
     Active Substance: SODIUM FERRIC GLUCONATE COMPLEX
     Indication: IRON DEFICIENCY
     Dosage: 4.64 MG, Q4W
     Route: 042
  21. LANTHANUM CARBONATE. [Suspect]
     Active Substance: LANTHANUM CARBONATE
     Indication: BLOOD PHOSPHORUS INCREASED
     Dosage: 500 MG, PRN ; AS NECESSARY
     Route: 048
  22. ARANESP [Suspect]
     Active Substance: DARBEPOETIN ALFA
     Indication: ANAEMIA
     Dosage: 0.714 UG, QOW (SOLUTION INTRAVENOUS)
     Route: 042
  23. SIMVASTATIN. [Suspect]
     Active Substance: SIMVASTATIN
     Indication: BLOOD CHOLESTEROL INCREASED
     Dosage: 40 MG, QD
     Route: 048
  24. SALBUTAN [SALBUTAMOL] [Suspect]
     Active Substance: ALBUTEROL
     Indication: CHRONIC OBSTRUCTIVE PULMONARY DISEASE
     Dosage: UNK UNK, QID (), 1DOSE/6H
     Route: 055
  25. WARFARIN [Suspect]
     Active Substance: WARFARIN
     Indication: THROMBOSIS
     Dosage: 2 G, QD
     Route: 048
  26. DULCOLAX NOS [Suspect]
     Active Substance: BISACODYL OR DOCUSATE SODIUM
     Indication: CONSTIPATION
     Dosage: 10 MG, PRN ; AS NECESSARY
     Route: 054
  27. HYDROMORPHONE [Suspect]
     Active Substance: HYDROMORPHONE
     Indication: ANALGESIC THERAPY
     Dosage: 6 MG, QID
     Route: 058
  28. FLUTICASONE FUROATE/VILANTEROL TRIFENATATE [Suspect]
     Active Substance: FLUTICASONE FUROATE\VILANTEROL TRIFENATATE
     Indication: PRODUCT USED FOR UNKNOWN INDICATION
     Dosage: UNK
     Route: 065
  29. MELATONIN [Suspect]
     Active Substance: MELATONIN
     Indication: SLEEP DISORDER THERAPY
     Dosage: 3 MG, QD
     Route: 048
  30. GABAPENTIN. [Suspect]
     Active Substance: GABAPENTIN
     Indication: NEURALGIA
     Dosage: 100 MG, QD
     Route: 048
  31. GLUCOSE [Suspect]
     Active Substance: DEXTROSE
     Indication: NUTRITIONAL SUPPLEMENTATION
     Dosage: 12.5 G, PRN ; AS NECESSARY
     Route: 042
  32. SODIUM CITRATE. [Suspect]
     Active Substance: SODIUM CITRATE
     Indication: THROMBOSIS
     Dosage: 2.5 ML, PRN (4GM/100ML SOLUTION UNASSIGNED) ; AS NECESSARY
     Route: 065
  33. ACETAMINOPHEN. [Suspect]
     Active Substance: ACETAMINOPHEN
     Indication: ANALGESIC THERAPY
     Dosage: 650 MG, QD
     Route: 048
  34. UMECLIDINIUM BROMIDE [Suspect]
     Active Substance: UMECLIDINIUM BROMIDE
     Indication: DYSPNOEA
     Dosage: 1.0 IU, QD
     Route: 048
  35. MACROGOL 3350 [Suspect]
     Active Substance: POLYETHYLENE GLYCOL 3350
     Indication: CONSTIPATION
     Dosage: 17 G, QD
     Route: 048
  36. VASOPRESSIN. [Suspect]
     Active Substance: VASOPRESSIN
     Indication: DRUG THERAPY
     Dosage: UNK
     Route: 042
  37. BETAMETHASONE. [Suspect]
     Active Substance: BETAMETHASONE
     Indication: SWELLING
     Dosage: UNK UNK, PRN () ; AS NECESSARY
     Route: 061

REACTIONS (14)
  - Appendicolith [Fatal]
  - Abdominal pain [Fatal]
  - Stress [Fatal]
  - Appendicitis [Fatal]
  - Hyponatraemia [Fatal]
  - Abdominal distension [Fatal]
  - Multiple organ dysfunction syndrome [Fatal]
  - Vomiting [Fatal]
  - Ascites [Fatal]
  - Sepsis [Fatal]
  - General physical health deterioration [Fatal]
  - Cardiogenic shock [Fatal]
  - Nausea [Fatal]
  - Constipation [Fatal]
